FAERS Safety Report 13764996 (Version 1)
Quarter: 2017Q3

REPORT INFORMATION
  Report Type: Report from Study
  Country: US (occurrence: US)
  Receive Date: 20170718
  Receipt Date: 20170718
  Transmission Date: 20171127
  Serious: Yes (Other)
  Sender: FDA-Public Use
  Company Number: US-EMD SERONO-E2B_80074958

PATIENT
  Sex: Female

DRUGS (1)
  1. REBIF [Suspect]
     Active Substance: INTERFERON BETA-1A
     Indication: PRODUCT USED FOR UNKNOWN INDICATION
     Route: 058
     Dates: start: 20081002

REACTIONS (4)
  - White blood cell count abnormal [Recovered/Resolved]
  - Urinary retention [Not Recovered/Not Resolved]
  - Injection site erythema [Recovering/Resolving]
  - Muscle spasms [Not Recovered/Not Resolved]
